FAERS Safety Report 9303055 (Version 2)
Quarter: 2013Q3

REPORT INFORMATION
  Report Type: Spontaneous
  Country: US (occurrence: None)
  Receive Date: 20130517
  Receipt Date: 20130705
  Transmission Date: 20140515
  Serious: Yes (Hospitalization)
  Sender: FDA-Public Use
  Company Number: ACO_36056_2013

PATIENT
  Age: 58 Year
  Sex: Female
  Weight: 60.8 kg

DRUGS (9)
  1. AMPYRA [Suspect]
     Indication: GAIT DISTURBANCE
     Route: 048
     Dates: start: 201112
  2. AMPYRA [Suspect]
     Indication: MULTIPLE SCLEROSIS
     Route: 048
     Dates: start: 201112
  3. CORTICOSTEROIDS [Suspect]
     Indication: MULTIPLE SCLEROSIS
     Dosage: IV INFUSION
     Route: 042
  4. LORAZEPAM (LORAZEPAM) [Concomitant]
  5. VIIBRYD (VILAZODONE HYDROCHLORIDE) [Concomitant]
  6. BUSPIRONE (BUSPIRONE) [Concomitant]
  7. ARMOUR THYROID (THYROID) [Concomitant]
  8. NUVIGIL (ARMODAFINIL) [Concomitant]
  9. IMMUNOGLOBULIN I.V (IMMUNOGLOBULINS NOS) [Concomitant]

REACTIONS (2)
  - Hip arthroplasty [None]
  - Musculoskeletal discomfort [None]
